FAERS Safety Report 23761773 (Version 1)
Quarter: 2024Q2

REPORT INFORMATION
  Report Type: Spontaneous
  Country: US (occurrence: US)
  Receive Date: 20240419
  Receipt Date: 20240419
  Transmission Date: 20240716
  Serious: Yes (Other)
  Sender: FDA-Public Use
  Company Number: US-MSNLABS-2024MSNLIT00888

PATIENT

DRUGS (1)
  1. LACOSAMIDE [Suspect]
     Active Substance: LACOSAMIDE
     Indication: Seizure prophylaxis
     Route: 042

REACTIONS (2)
  - Bundle branch block left [Recovered/Resolved]
  - Atrial flutter [Recovered/Resolved]
